FAERS Safety Report 13076924 (Version 1)
Quarter: 2016Q4

REPORT INFORMATION
  Report Type: Spontaneous
  Country: BR (occurrence: BR)
  Receive Date: 20161230
  Receipt Date: 20161230
  Transmission Date: 20170207
  Serious: Yes (Other)
  Sender: FDA-Public Use
  Company Number: BR-PFIZER INC-2014278778

PATIENT
  Age: 66 Year
  Sex: Female
  Weight: 62 kg

DRUGS (4)
  1. XALATAN [Suspect]
     Active Substance: LATANOPROST
     Indication: GLAUCOMA
     Dosage: 1 GTT (1.5 MCG OF LATANOPROST), 1X/DAY
     Route: 047
     Dates: start: 2008, end: 20161222
  2. MOTILIUM ^JANSSEN^ [Concomitant]
     Indication: GASTROOESOPHAGEAL REFLUX DISEASE
     Dosage: 2 DF, DAILY (TABLETS)
     Dates: start: 2011
  3. OMEPRAZOLE. [Concomitant]
     Active Substance: OMEPRAZOLE
     Indication: ABDOMINAL DISCOMFORT
     Dosage: 1 DF, DAILY (TABLET)
     Dates: start: 2011
  4. HYLO [Concomitant]
     Indication: DRY EYE
     Dosage: 6 TIMES PER DAY
     Route: 047

REACTIONS (4)
  - Condition aggravated [Unknown]
  - Incorrect product storage [Unknown]
  - Glaucoma [Unknown]
  - Cataract [Unknown]
